FAERS Safety Report 5012053-0 (Version None)
Quarter: 2006Q2

REPORT INFORMATION
  Report Type: 
  Country: None (occurrence: None)
  Receive Date: 20060526
  Receipt Date: 20060510
  Transmission Date: 20061013
  Serious: Yes (Life-Threatening)
  Sender: FDA-Public Use
  Company Number: 2006JP001281

PATIENT
  Age: 73 Year
  Sex: Female

DRUGS (1)
  1. CEFAZOLIN [Suspect]
     Indication: WOUND INFECTION
     Dosage: 2G FOUR TIMES PER DAY
     Route: 042
     Dates: start: 20060503, end: 20060503

REACTIONS (2)
  - DISCOMFORT [None]
  - SHOCK [None]
